FAERS Safety Report 11228906 (Version 1)
Quarter: 2015Q2

REPORT INFORMATION
  Report Type: Spontaneous
  Country: CN (occurrence: CN)
  Receive Date: 20150630
  Receipt Date: 20150630
  Transmission Date: 20150821
  Serious: Yes (Death)
  Sender: FDA-Public Use
  Company Number: CN-AKORN PHARMACEUTICALS-2015AKN00366

PATIENT
  Age: 47 Year
  Sex: Female

DRUGS (16)
  1. CIS-ATRACURIUM [Suspect]
     Active Substance: CISATRACURIUM
     Dosage: 8 MG, ONCE
     Route: 042
  2. ATROPINE [Concomitant]
     Active Substance: ATROPINE
     Dosage: 0.5 MG, ONCE
  3. NITROUS OXIDE. [Concomitant]
     Active Substance: NITROUS OXIDE
  4. FENTANYL. [Suspect]
     Active Substance: FENTANYL
     Indication: ANAESTHESIA
     Dosage: 150 ?G, ONCE
     Route: 042
  5. OXYGEN. [Concomitant]
     Active Substance: OXYGEN
  6. FENTANYL. [Suspect]
     Active Substance: FENTANYL
     Dosage: 100 ?G, ONCE
     Route: 042
  7. FENTANYL. [Suspect]
     Active Substance: FENTANYL
     Dosage: 300 ?G, UNK
     Route: 042
  8. CEFOTIAM [Concomitant]
     Active Substance: CEFOTIAM
     Dosage: 2 G, UNK
     Route: 042
  9. PANTOPRAZOLE [Concomitant]
     Active Substance: PANTOPRAZOLE SODIUM
     Dosage: 40 MG, UNK
     Route: 042
  10. PROPOFOL. [Concomitant]
     Active Substance: PROPOFOL
     Dosage: 200 MG, ONCE
  11. SEVOFLURANE. [Concomitant]
     Active Substance: SEVOFLURANE
  12. CLINDAMYCIN [Suspect]
     Active Substance: CLINDAMYCIN\CLINDAMYCIN PHOSPHATE
     Dosage: 1.2 G, ONCE
     Route: 042
  13. MIDAZOLAM [Concomitant]
     Active Substance: MIDAZOLAM\MIDAZOLAM HYDROCHLORIDE
     Dosage: 2 MG, UNK
  14. TRAMADOL [Concomitant]
     Active Substance: TRAMADOL
  15. NEOSTIGMINE [Concomitant]
     Active Substance: NEOSTIGMINE
     Dosage: 1 MG, ONCE
  16. SUCCINYLCHOLINE [Concomitant]
     Active Substance: SUCCINYLCHOLINE
     Dosage: 100 MG, UNK

REACTIONS (6)
  - Neuromuscular blockade [Fatal]
  - Overdose [Fatal]
  - Cardiac arrest [Fatal]
  - Drug interaction [Fatal]
  - Respiratory depression [Fatal]
  - Respiratory arrest [Fatal]
